FAERS Safety Report 10555275 (Version 1)
Quarter: 2014Q4

REPORT INFORMATION
  Report Type: Spontaneous
  Country: US (occurrence: None)
  Receive Date: 20141029
  Receipt Date: 20141029
  Transmission Date: 20150529
  Serious: Yes (Disabling)
  Sender: FDA-Public Use
  Company Number: None

PATIENT
  Age: 40 Year
  Sex: Female
  Weight: 49.9 kg

DRUGS (1)
  1. SEROQUEL [Suspect]
     Active Substance: QUETIAPINE FUMARATE
     Indication: INSOMNIA
     Dosage: 1 PILL BEFORE BID
     Route: 048
     Dates: start: 20140815, end: 20141028

REACTIONS (7)
  - Weight increased [None]
  - Hunger [None]
  - Restless legs syndrome [None]
  - Palpitations [None]
  - Feeling abnormal [None]
  - Sleep disorder [None]
  - Mental disorder [None]

NARRATIVE: CASE EVENT DATE: 20141028
